FAERS Safety Report 9200241 (Version 3)
Quarter: 2013Q3

REPORT INFORMATION
  Report Type: Spontaneous
  Country: JP (occurrence: JP)
  Receive Date: 20130329
  Receipt Date: 20130820
  Transmission Date: 20140515
  Serious: Yes (Death, Life-Threatening, Other)
  Sender: FDA-Public Use
  Company Number: JP-ROCHE-1206837

PATIENT
  Age: 65 Year
  Sex: Male
  Weight: 69 kg

DRUGS (8)
  1. AVASTIN [Suspect]
     Indication: RECTAL CANCER METASTATIC
     Route: 041
     Dates: start: 20090312, end: 20110112
  2. ELPLAT [Suspect]
     Indication: RECTAL CANCER METASTATIC
     Route: 041
     Dates: start: 20090312, end: 20090727
  3. CALCIUM LEVOFOLINATE [Concomitant]
     Indication: RECTAL CANCER METASTATIC
     Route: 041
     Dates: start: 20090312, end: 20090727
  4. CALCIUM LEVOFOLINATE [Concomitant]
     Indication: RECTAL CANCER METASTATIC
     Route: 041
     Dates: start: 200908
  5. 5-FU [Concomitant]
     Indication: RECTAL CANCER METASTATIC
     Route: 040
     Dates: start: 20090312, end: 20090727
  6. 5-FU [Concomitant]
     Indication: RECTAL CANCER METASTATIC
     Route: 041
     Dates: start: 20090312, end: 20090727
  7. 5-FU [Concomitant]
     Indication: RECTAL CANCER METASTATIC
     Route: 040
     Dates: start: 200908
  8. 5-FU [Concomitant]
     Indication: RECTAL CANCER METASTATIC
     Route: 041
     Dates: start: 200908

REACTIONS (7)
  - Death [Fatal]
  - Gastrointestinal perforation [Recovered/Resolved]
  - Gastrointestinal perforation [Recovered/Resolved]
  - Abdominal abscess [Unknown]
  - Impaired healing [Unknown]
  - Diverticulitis [Recovered/Resolved]
  - Neurotoxicity [Unknown]
